FAERS Safety Report 7724479-2 (Version None)
Quarter: 2011Q3

REPORT INFORMATION
  Report Type: 
  Country: None (occurrence: None)
  Receive Date: 20110901
  Receipt Date: 20110824
  Transmission Date: 20111222
  Serious: Yes (Other)
  Sender: FDA-Public Use
  Company Number: US-GLAXOSMITHKLINE-A0942935A

PATIENT
  Age: 63 Year
  Sex: Female

DRUGS (1)
  1. LOVAZA [Suspect]
     Dosage: 1G UNKNOWN
     Route: 065

REACTIONS (1)
  - CATARACT OPERATION [None]
